FAERS Safety Report 14462104 (Version 1)
Quarter: 2018Q1

REPORT INFORMATION
  Report Type: Spontaneous
  Country: FR (occurrence: FR)
  Receive Date: 20180130
  Receipt Date: 20180130
  Transmission Date: 20180509
  Serious: Yes (Other)
  Sender: FDA-Public Use
  Company Number: FR-OTSUKA-2018_000868

PATIENT

DRUGS (1)
  1. ABILIFY [Suspect]
     Active Substance: ARIPIPRAZOLE
     Indication: PRODUCT USED FOR UNKNOWN INDICATION
     Dosage: UNK
     Route: 065

REACTIONS (9)
  - Mucosal pigmentation [Unknown]
  - Saliva altered [Unknown]
  - Vocal cord paralysis [Unknown]
  - Vocal cord disorder [Unknown]
  - Erythema [Unknown]
  - Necrosis [Unknown]
  - Haematoma [Unknown]
  - Oedema [Unknown]
  - Mucosal dryness [Unknown]
